FAERS Safety Report 23028441 (Version 2)
Quarter: 2024Q2

REPORT INFORMATION
  Report Type: Report from Study
  Country: CA (occurrence: CA)
  Receive Date: 20231004
  Receipt Date: 20240503
  Transmission Date: 20240716
  Serious: Yes (Other)
  Sender: FDA-Public Use
  Company Number: CA-002147023-NVSC2022CA105733

PATIENT
  Age: 57 Year
  Sex: Male

DRUGS (6)
  1. HYRIMOZ [Suspect]
     Active Substance: ADALIMUMAB-ADAZ
     Indication: Crohn^s disease
     Dosage: 40 MG, Q2W
     Route: 058
     Dates: start: 20220422
  2. ALVESCO [Concomitant]
     Active Substance: CICLESONIDE
     Indication: Product used for unknown indication
     Dosage: UNK, (ALVESCO PUFFER)
     Route: 065
  3. UNSPECIFIED INGREDIENT [Concomitant]
     Active Substance: UNSPECIFIED INGREDIENT
     Indication: Product used for unknown indication
     Dosage: UNK, (NASAL SPRAY OMARUS)
     Route: 065
  4. PREDNISONE [Concomitant]
     Active Substance: PREDNISONE
     Indication: Product used for unknown indication
     Dosage: 40MG FOR 10 DAYS
     Route: 065
  5. PREDNISONE [Concomitant]
     Active Substance: PREDNISONE
     Dosage: UNK, 1 TABLET PER WEEK.
     Route: 065
  6. SYNTHROID [Concomitant]
     Active Substance: LEVOTHYROXINE SODIUM
     Indication: Product used for unknown indication
     Dosage: UNK
     Route: 065

REACTIONS (23)
  - Uveitis [Unknown]
  - Crohn^s disease [Recovered/Resolved]
  - Candida infection [Unknown]
  - Fatigue [Unknown]
  - Dyspnoea [Unknown]
  - Inappropriate schedule of product administration [Unknown]
  - Drug ineffective [Unknown]
  - Anxiety [Recovered/Resolved]
  - Headache [Recovered/Resolved]
  - Irritability [Recovered/Resolved]
  - Abdominal pain lower [Unknown]
  - Diarrhoea [Unknown]
  - Arthralgia [Unknown]
  - Joint swelling [Unknown]
  - Rash [Unknown]
  - Hypoacusis [Not Recovered/Not Resolved]
  - Gastrooesophageal reflux disease [Unknown]
  - Disturbance in attention [Unknown]
  - Weight fluctuation [Unknown]
  - Sleep disorder [Unknown]
  - Anger [Unknown]
  - Irritability [Unknown]
  - Rash pruritic [Recovered/Resolved]

NARRATIVE: CASE EVENT DATE: 20230501
